FAERS Safety Report 6705833-4 (Version None)
Quarter: 2010Q2

REPORT INFORMATION
  Report Type: 
  Country: None (occurrence: None)
  Receive Date: 20100503
  Receipt Date: 20081020
  Transmission Date: 20101027
  Serious: Yes (Other)
  Sender: FDA-Public Use
  Company Number: US-BAYER-200832206NA

PATIENT
  Age: 70 Year
  Sex: Male

DRUGS (3)
  1. NEXAVAR [Suspect]
     Indication: RENAL CELL CARCINOMA
     Dosage: AS USED: 200 MG  UNIT DOSE: 200 MG
     Route: 048
     Dates: start: 20080909
  2. NEXAVAR [Suspect]
     Dosage: TOTAL DAILY DOSE: 400 MG  UNIT DOSE: 200 MG
     Route: 048
     Dates: start: 20080822, end: 20080909
  3. BLOOD PRESSURE MEDICATIONS [Concomitant]

REACTIONS (13)
  - BLOOD PRESSURE INCREASED [None]
  - DYSPEPSIA [None]
  - EXTRASYSTOLES [None]
  - NAUSEA [None]
  - NIPPLE PAIN [None]
  - PAIN [None]
  - PAINFUL RESPIRATION [None]
  - PALPITATIONS [None]
  - PYREXIA [None]
  - RASH PAPULAR [None]
  - SKIN DISORDER [None]
  - TENDERNESS [None]
  - TUMOUR PAIN [None]
